FAERS Safety Report 10344820 (Version 6)
Quarter: 2014Q4

REPORT INFORMATION
  Report Type: Spontaneous
  Country: US (occurrence: None)
  Receive Date: 20140723
  Receipt Date: 20141008
  Transmission Date: 20150528
  Serious: Yes (Hospitalization)
  Sender: FDA-Public Use
  Company Number: 20140410

PATIENT
  Age: 28 Year
  Sex: Female

DRUGS (1)
  1. INJECTAFER [Suspect]
     Active Substance: FERRIC CARBOXYMALTOSE
     Indication: MENORRHAGIA
     Dosage: 750MG, 2 DOSES ONE WEEK APART INTRAVENOUS
     Route: 042
     Dates: start: 20140527, end: 20140603

REACTIONS (8)
  - Dizziness [None]
  - Treatment noncompliance [None]
  - Chest discomfort [None]
  - Muscle spasms [None]
  - Off label use [None]
  - Blood magnesium decreased [None]
  - Paraesthesia [None]
  - Hypophosphataemia [None]

NARRATIVE: CASE EVENT DATE: 20140527
